FAERS Safety Report 23958071 (Version 1)
Quarter: 2024Q2

REPORT INFORMATION
  Report Type: Report from Study
  Country: US (occurrence: US)
  Receive Date: 20240610
  Receipt Date: 20240610
  Transmission Date: 20240715
  Serious: Yes (Hospitalization, Other)
  Sender: FDA-Public Use
  Company Number: US-CLINIGEN-US-CLI-2023-043428

PATIENT

DRUGS (12)
  1. ALDESLEUKIN [Suspect]
     Active Substance: ALDESLEUKIN
     Indication: Lung adenocarcinoma
     Dosage: 52 MILLION INTERNATIONAL UNIT, Q12H
     Route: 042
     Dates: start: 20231121, end: 20231130
  2. ALDESLEUKIN [Suspect]
     Active Substance: ALDESLEUKIN
     Indication: Adenocarcinoma metastatic
  3. LIFILEUCEL [Suspect]
     Active Substance: LIFILEUCEL
     Indication: Lung adenocarcinoma
     Dosage: 1X10^9
     Route: 042
     Dates: start: 20231121, end: 20231121
  4. LIFILEUCEL [Suspect]
     Active Substance: LIFILEUCEL
     Indication: Adenocarcinoma metastatic
  5. CYCLOPHOSPHAMIDE [Suspect]
     Active Substance: CYCLOPHOSPHAMIDE
     Indication: Lung adenocarcinoma
     Dosage: 5380 MILLIGRAM, DAY -7, -6
     Route: 042
  6. CYCLOPHOSPHAMIDE [Suspect]
     Active Substance: CYCLOPHOSPHAMIDE
     Indication: Adenocarcinoma metastatic
  7. FLUDARABINE [Suspect]
     Active Substance: FLUDARABINE PHOSPHATE
     Indication: Lung adenocarcinoma
     Dosage: 53 MILLIGRAM, DAY -5, -4
     Route: 042
  8. FLUDARABINE [Suspect]
     Active Substance: FLUDARABINE PHOSPHATE
     Indication: Adenocarcinoma metastatic
  9. PEMBROLIZUMAB [Suspect]
     Active Substance: PEMBROLIZUMAB
     Indication: Lung adenocarcinoma
     Dosage: 600 MILLIGRAM WK
     Route: 042
     Dates: start: 20231025
  10. PEMBROLIZUMAB [Suspect]
     Active Substance: PEMBROLIZUMAB
     Indication: Adenocarcinoma metastatic
  11. DEMEROL [Concomitant]
     Active Substance: MEPERIDINE HYDROCHLORIDE
     Indication: Chills
     Dosage: UNK
     Route: 065
     Dates: start: 20231130, end: 20231130
  12. INDOMETHACIN [Concomitant]
     Active Substance: INDOMETHACIN
     Indication: Pyrexia
     Dosage: UNK
     Route: 065
     Dates: start: 20231130, end: 20231130

REACTIONS (2)
  - Clostridium difficile colitis [Recovered/Resolved]
  - Confusional state [Recovered/Resolved]

NARRATIVE: CASE EVENT DATE: 20231130
